FAERS Safety Report 9311332 (Version 1)
Quarter: 2013Q2

REPORT INFORMATION
  Report Type: Spontaneous
  Country: GB (occurrence: GB)
  Receive Date: 20130528
  Receipt Date: 20130528
  Transmission Date: 20140414
  Serious: Yes (Other)
  Sender: FDA-Public Use
  Company Number: GB-NOVOPROD-378020

PATIENT
  Age: 49 Year
  Sex: Female
  Weight: 98.9 kg

DRUGS (3)
  1. KLIOVANCE [Suspect]
     Indication: HORMONE REPLACEMENT THERAPY
     Dosage: 1 DF, QD
     Route: 048
  2. RESOLOR [Suspect]
     Indication: CONSTIPATION
     Dosage: 2 MG, QD
     Route: 048
     Dates: start: 201206
  3. AMITRIPTYLINE [Suspect]
     Indication: SLEEP DISORDER
     Dosage: 10 MG, QD
     Route: 048
     Dates: start: 2009

REACTIONS (3)
  - Dysmenorrhoea [Recovering/Resolving]
  - Vaginal haemorrhage [Recovering/Resolving]
  - Drug interaction [Unknown]
